FAERS Safety Report 20911886 (Version 1)
Quarter: 2022Q2

REPORT INFORMATION
  Report Type: Spontaneous
  Country: US (occurrence: None)
  Receive Date: 20220603
  Receipt Date: 20220603
  Transmission Date: 20220721
  Serious: Yes (Life-Threatening)
  Sender: FDA-Public Use
  Company Number: None

PATIENT
  Age: 63 Year
  Sex: Female
  Weight: 74.9 kg

DRUGS (1)
  1. YESCARTA [Suspect]
     Active Substance: AXICABTAGENE CILOLEUCEL
     Indication: Diffuse large B-cell lymphoma
     Dosage: OTHER FREQUENCY : ONCE;?
     Route: 042
     Dates: start: 20220523, end: 20220523

REACTIONS (5)
  - Cytokine release syndrome [None]
  - Neurotoxicity [None]
  - Hypotension [None]
  - Pyrexia [None]
  - Electroencephalogram abnormal [None]

NARRATIVE: CASE EVENT DATE: 20220526
